FAERS Safety Report 24829927 (Version 1)
Quarter: 2025Q1

REPORT INFORMATION
  Report Type: Spontaneous
  Country: JP (occurrence: JP)
  Receive Date: 20250110
  Receipt Date: 20250110
  Transmission Date: 20250408
  Serious: Yes (Hospitalization, Other)
  Sender: INGENUS
  Company Number: JP-INGENUS PHARMACEUTICALS, LLC-2024INF000055

PATIENT
  Age: 34 Year
  Sex: Male

DRUGS (1)
  1. LEVETIRACETAM [Suspect]
     Active Substance: LEVETIRACETAM
     Indication: Temporal lobe epilepsy
     Dosage: 1000 MILLIGRAM, QD
     Route: 065

REACTIONS (1)
  - Rhabdomyolysis [Recovering/Resolving]
